FAERS Safety Report 26140856 (Version 1)
Quarter: 2025Q4

REPORT INFORMATION
  Report Type: Report from Study
  Country: US (occurrence: US)
  Receive Date: 20251210
  Receipt Date: 20251210
  Transmission Date: 20260117
  Serious: Yes (Disabling)
  Sender: EISAI
  Company Number: US-009507513-2357846

PATIENT
  Age: 52 Year
  Sex: Female

DRUGS (2)
  1. LENVATINIB [Suspect]
     Active Substance: LENVATINIB
     Indication: Ovarian cancer
     Route: 048
     Dates: start: 20240529, end: 20251022
  2. PEMBROLIZUMAB [Suspect]
     Active Substance: PEMBROLIZUMAB
     Indication: Ovarian cancer
     Route: 042
     Dates: start: 20240812, end: 20251022

REACTIONS (1)
  - Vulvovaginal inflammation [Unknown]

NARRATIVE: CASE EVENT DATE: 20251124
